FAERS Safety Report 9621666 (Version 1)
Quarter: 2013Q4

REPORT INFORMATION
  Report Type: Spontaneous
  Country: US (occurrence: US)
  Receive Date: 20131015
  Receipt Date: 20131015
  Transmission Date: 20140711
  Serious: No
  Sender: FDA-Public Use
  Company Number: US-TEVA-437776USA

PATIENT
  Sex: Male

DRUGS (2)
  1. QVAR [Suspect]
     Dosage: 80 UG/1
     Route: 055
  2. PROVENTIL [Concomitant]

REACTIONS (2)
  - Sputum discoloured [Unknown]
  - Infection [Unknown]
